FAERS Safety Report 14967230 (Version 1)
Quarter: 2018Q2

REPORT INFORMATION
  Report Type: Spontaneous
  Country: JP (occurrence: JP)
  Receive Date: 20180604
  Receipt Date: 20180604
  Transmission Date: 20180711
  Serious: Yes (Other)
  Sender: FDA-Public Use
  Company Number: JP-CHEPLA-C20170391

PATIENT

DRUGS (1)
  1. VESANOID [Suspect]
     Active Substance: TRETINOIN
     Indication: ACUTE PROMYELOCYTIC LEUKAEMIA
     Route: 048

REACTIONS (5)
  - Genital ulceration [Recovering/Resolving]
  - Stomatitis [Recovering/Resolving]
  - Skin swelling [Recovering/Resolving]
  - Acute promyelocytic leukaemia differentiation syndrome [Recovered/Resolved]
  - Erythema [Recovering/Resolving]
